FAERS Safety Report 7816691-9 (Version None)
Quarter: 2011Q4

REPORT INFORMATION
  Report Type: 
  Country: None (occurrence: None)
  Receive Date: 20111017
  Receipt Date: 20111012
  Transmission Date: 20120403
  Serious: Yes (Other)
  Sender: FDA-Public Use
  Company Number: US-PFIZER INC-2011182761

PATIENT
  Sex: Female
  Weight: 63.5 kg

DRUGS (7)
  1. TIKOSYN [Suspect]
     Indication: HEART DISEASE CONGENITAL
     Dosage: 250 UG, 2X/DAY
     Dates: start: 20110627
  2. TIKOSYN [Suspect]
     Indication: ARRHYTHMIA
  3. CRESTOR [Concomitant]
     Indication: BLOOD CHOLESTEROL INCREASED
     Dosage: 20 MG, DAILY
  4. DILTIAZEM HCL [Suspect]
     Dosage: 120 MG, DAILY
     Dates: start: 20110627
  5. PRADAXA [Concomitant]
     Dosage: 150 MG, 2X/DAY
  6. QUINAPRIL [Concomitant]
     Indication: HYPERTENSION
     Dosage: 15 MG, 2X/DAY
  7. LASIX [Concomitant]
     Dosage: 20 MG, DAILY

REACTIONS (2)
  - ELECTROCARDIOGRAM QT PROLONGED [None]
  - NASOPHARYNGITIS [None]
